FAERS Safety Report 9392269 (Version 4)
Quarter: 2014Q2

REPORT INFORMATION
  Report Type: Spontaneous
  Country: FR (occurrence: FR)
  Receive Date: 20130710
  Receipt Date: 20140613
  Transmission Date: 20141212
  Serious: Yes (Hospitalization)
  Sender: FDA-Public Use
  Company Number: FR-ROCHE-1246775

PATIENT
  Age: 76 Year
  Sex: Male

DRUGS (10)
  1. MABTHERA [Suspect]
     Indication: LYMPHOMA
     Route: 042
     Dates: start: 20120614, end: 201302
  2. ENDOXAN [Suspect]
     Indication: PRODUCT USED FOR UNKNOWN INDICATION
     Route: 042
     Dates: start: 20120614, end: 201302
  3. ETOPOSIDE [Suspect]
     Indication: PRODUCT USED FOR UNKNOWN INDICATION
     Route: 042
     Dates: end: 201302
  4. PREDNISOLONE [Suspect]
     Indication: PRODUCT USED FOR UNKNOWN INDICATION
     Dosage: 40MG X2 FROM D1 TO D5
     Route: 048
     Dates: start: 20120727, end: 20130205
  5. KARDEGIC [Concomitant]
     Route: 048
  6. FOLINORAL [Concomitant]
     Route: 048
  7. INEXIUM [Concomitant]
     Dosage: DAILY
     Route: 048
  8. BACTRIM FORTE [Concomitant]
     Route: 048
  9. XATRAL [Concomitant]
     Dosage: DAILY
     Route: 048
  10. METHYLPREDNISOLONE [Concomitant]
     Route: 065
     Dates: start: 20120614

REACTIONS (1)
  - Visual acuity reduced [Not Recovered/Not Resolved]
